FAERS Safety Report 15661457 (Version 1)
Quarter: 2018Q4

REPORT INFORMATION
  Report Type: Report from Study
  Country: ES (occurrence: ES)
  Receive Date: 20181127
  Receipt Date: 20181127
  Transmission Date: 20190205
  Serious: Yes (Hospitalization, Other)
  Sender: FDA-Public Use
  Company Number: PHHY2018ES089574

PATIENT
  Age: 70 Year
  Sex: Female
  Weight: 59 kg

DRUGS (5)
  1. DIOSMINE [Concomitant]
     Active Substance: DIOSMIN
     Indication: PERIPHERAL VENOUS DISEASE
     Dosage: 1 DF, QD
     Route: 048
     Dates: start: 2000
  2. HYCAMTIN [Suspect]
     Active Substance: TOPOTECAN HYDROCHLORIDE
     Indication: SMALL CELL LUNG CANCER
     Dosage: 1.5 MG/M2, (DAY 1 TO 5 OF EACH 21 DAY CYCLE)
     Route: 042
     Dates: start: 20180716, end: 20180720
  3. ROSUVASTATIN. [Concomitant]
     Active Substance: ROSUVASTATIN
     Indication: DYSLIPIDAEMIA
     Dosage: 20 MG, QD
     Route: 048
     Dates: start: 2000
  4. PENTOXIFYLLINE. [Concomitant]
     Active Substance: PENTOXIFYLLINE
     Indication: PERIPHERAL VENOUS DISEASE
     Dosage: 400 MG, QD
     Route: 048
     Dates: start: 2000
  5. CODEIN [Concomitant]
     Active Substance: CODEINE
     Indication: COUGH
     Dosage: 2 DF, QD (20 MG)
     Route: 048
     Dates: start: 2017

REACTIONS (8)
  - Thrombocytopenia [Recovered/Resolved]
  - Neutropenia [Recovered/Resolved]
  - Fatigue [Unknown]
  - Escherichia urinary tract infection [Unknown]
  - White blood cell count decreased [Unknown]
  - General physical health deterioration [Unknown]
  - Anaemia [Recovered/Resolved]
  - Dizziness [Unknown]

NARRATIVE: CASE EVENT DATE: 20180728
